FAERS Safety Report 4511043-1 (Version None)
Quarter: 2004Q4

REPORT INFORMATION
  Report Type: 
  Country: None (occurrence: None)
  Receive Date: 20041018
  Receipt Date: 20040907
  Transmission Date: 20050328
  Serious: No
  Sender: FDA-Public Use
  Company Number: 208890

PATIENT
  Age: 48 Year
  Sex: Female
  Weight: 65.3 kg

DRUGS (10)
  1. XOLAIR [Suspect]
     Indication: ASTHMA
     Dosage: 150 MG, 1/MONTH, SUBCUTANEOUS
     Route: 058
     Dates: start: 20040907
  2. GUAIFENESIN (GUAIFENESIN) [Concomitant]
  3. SINGULAR (MONTELUKAST SODIUM) [Concomitant]
  4. FLOVENT [Concomitant]
  5. NEURONTIN [Concomitant]
  6. AEROBID [Concomitant]
  7. THEOPHYLLINE [Concomitant]
  8. PROPRANOLOL [Concomitant]
  9. MEDROL [Concomitant]
  10. SKELAXIN [Concomitant]

REACTIONS (3)
  - DYSGEUSIA [None]
  - INJECTION SITE PRURITUS [None]
  - SNEEZING [None]
